FAERS Safety Report 6252675-2 (Version None)
Quarter: 2009Q3

REPORT INFORMATION
  Report Type: 
  Country: None (occurrence: None)
  Receive Date: 20090701
  Receipt Date: 20090619
  Transmission Date: 20100115
  Serious: Yes (Other)
  Sender: FDA-Public Use
  Company Number: PHHY2009BR24890

PATIENT
  Sex: Male
  Weight: 17 kg

DRUGS (5)
  1. TRILEPTAL [Suspect]
     Indication: PETIT MAL EPILEPSY
     Dosage: 2.5ML, EVERY 12 HOURS
     Route: 048
     Dates: start: 20090618
  2. DEPAKENE [Concomitant]
     Indication: CONVULSION
     Dosage: 1.5 ML, UNK
  3. DEPAKENE [Concomitant]
     Dosage: 5ML, EVERY 12 HOURS
     Route: 048
     Dates: start: 20090611
  4. NISULID [Concomitant]
     Indication: NASOPHARYNGITIS
     Dosage: 1 DROP PER KG BODY MASS
     Route: 048
     Dates: start: 20090617
  5. NOTUSS [Concomitant]
     Indication: NASOPHARYNGITIS
     Dosage: 2.5ML EVERY 8 HOURS
     Route: 048
     Dates: start: 20090617

REACTIONS (4)
  - COORDINATION ABNORMAL [None]
  - FALL [None]
  - GAIT DISTURBANCE [None]
  - PETIT MAL EPILEPSY [None]
